FAERS Safety Report 8530588-0 (Version None)
Quarter: 2012Q3

REPORT INFORMATION
  Report Type: 
  Country: None (occurrence: None)
  Receive Date: 20120723
  Receipt Date: 20120717
  Transmission Date: 20120928
  Serious: No
  Sender: FDA-Public Use
  Company Number: US-009507513-1207USA005961

PATIENT

DRUGS (3)
  1. LANTUS [Concomitant]
  2. METFORMIN HYDROCHLORIDE [Concomitant]
  3. JANUVIA [Suspect]

REACTIONS (1)
  - OEDEMA PERIPHERAL [None]
